FAERS Safety Report 15981695 (Version 1)
Quarter: 2019Q1

REPORT INFORMATION
  Report Type: Spontaneous
  Country: US (occurrence: US)
  Receive Date: 20190219
  Receipt Date: 20190219
  Transmission Date: 20190418
  Serious: Yes (Life-Threatening, Hospitalization, Disabling)
  Sender: FDA-Public Use
  Company Number: None

PATIENT
  Age: 8 Year
  Sex: Female
  Weight: 18.9 kg

DRUGS (6)
  1. INTUNIV [Suspect]
     Active Substance: GUANFACINE HYDROCHLORIDE
     Indication: ATTENTION DEFICIT/HYPERACTIVITY DISORDER
     Dosage: ?          QUANTITY:1 TABLET(S);?
     Route: 048
     Dates: start: 20181227, end: 20190130
  2. ALBUTEROL. [Concomitant]
     Active Substance: ALBUTEROL
  3. ALLEGRA [Concomitant]
     Active Substance: FEXOFENADINE HYDROCHLORIDE
  4. MULTIVITAMINS [Concomitant]
     Active Substance: VITAMINS
  5. INTUNIV [Suspect]
     Active Substance: GUANFACINE HYDROCHLORIDE
     Indication: OPPOSITIONAL DEFIANT DISORDER
     Dosage: ?          QUANTITY:1 TABLET(S);?
     Route: 048
     Dates: start: 20181227, end: 20190130
  6. MOMETASONE FUROATE (ELOCON) [Concomitant]

REACTIONS (11)
  - Catatonia [None]
  - Disruptive mood dysregulation disorder [None]
  - Emotional disorder [None]
  - Impaired quality of life [None]
  - Seizure [None]
  - Syncope [None]
  - Disorientation [None]
  - Psychotic disorder [None]
  - Conversion disorder [None]
  - Speech disorder [None]
  - Psychological trauma [None]

NARRATIVE: CASE EVENT DATE: 20190124
